FAERS Safety Report 20131591 (Version 3)
Quarter: 2021Q4

REPORT INFORMATION
  Report Type: Spontaneous
  Country: US (occurrence: US)
  Receive Date: 20211130
  Receipt Date: 20211215
  Transmission Date: 20220303
  Serious: Yes (Other)
  Sender: FDA-Public Use
  Company Number: US-PFIZER INC-202101605717

PATIENT
  Age: 64 Year
  Sex: Female

DRUGS (3)
  1. TIKOSYN [Suspect]
     Active Substance: DOFETILIDE
     Indication: Atrial fibrillation
     Dosage: 125 UG, 2X/DAY
     Route: 048
  2. DOFETILIDE [Suspect]
     Active Substance: DOFETILIDE
     Dosage: 125 UG
  3. ALPRAZOLAM [Concomitant]
     Active Substance: ALPRAZOLAM
     Dosage: 0.25 MG, 3X/DAY(DISINTEGRATING 2 ORALLY THREE TIMES DAY)
     Route: 048

REACTIONS (6)
  - Atrial fibrillation [Not Recovered/Not Resolved]
  - Intestinal obstruction [Unknown]
  - Nausea [Unknown]
  - Vomiting [Unknown]
  - Fatigue [Unknown]
  - Dyspnoea [Unknown]
